FAERS Safety Report 6074566-2 (Version None)
Quarter: 2009Q1

REPORT INFORMATION
  Report Type: 
  Country: None (occurrence: None)
  Receive Date: 20090206
  Receipt Date: 20090123
  Transmission Date: 20090719
  Serious: Yes (Other)
  Sender: FDA-Public Use
  Company Number: 036417

PATIENT
  Age: 42 Year
  Sex: Female

DRUGS (2)
  1. CLARAVIS [Suspect]
     Dosage: 40 MG, QD, ORAL; 40 MG, BID, ORAL
     Route: 048
     Dates: start: 20080605, end: 20080101
  2. CLARAVIS [Suspect]
     Dosage: 40 MG, QD, ORAL; 40 MG, BID, ORAL
     Route: 048
     Dates: start: 20080811, end: 20080101

REACTIONS (4)
  - DRUG EXPOSURE DURING PREGNANCY [None]
  - PREGNANCY ON ORAL CONTRACEPTIVE [None]
  - PREGNANCY WITH CONTRACEPTIVE DEVICE [None]
  - TREATMENT NONCOMPLIANCE [None]
